FAERS Safety Report 4632954-2 (Version None)
Quarter: 2005Q2

REPORT INFORMATION
  Report Type: 
  Country: None (occurrence: None)
  Receive Date: 20050412
  Receipt Date: 20050404
  Transmission Date: 20051028
  Serious: Yes (Hospitalization)
  Sender: FDA-Public Use
  Company Number: JP-ROCHE-401367

PATIENT
  Age: 48 Year
  Sex: Male

DRUGS (1)
  1. TAMIFLU [Suspect]
     Indication: INFLUENZA
     Route: 048
     Dates: start: 20050309, end: 20050309

REACTIONS (3)
  - ECZEMA [None]
  - HEPATIC FUNCTION ABNORMAL [None]
  - HEPATITIS B [None]
